FAERS Safety Report 9989152 (Version 4)
Quarter: 2014Q2

REPORT INFORMATION
  Report Type: Report from Study
  Country: JP (occurrence: JP)
  Receive Date: 20140310
  Receipt Date: 20140402
  Transmission Date: 20141212
  Serious: Yes (Hospitalization)
  Sender: FDA-Public Use
  Company Number: JP-ROCHE-1360598

PATIENT
  Age: 83 Year
  Sex: Female
  Weight: 50.9 kg

DRUGS (32)
  1. RITUXIMAB [Suspect]
     Indication: NON-HODGKIN^S LYMPHOMA UNSPECIFIED HISTOLOGY INDOLENT
     Dosage: MOST RECENT DOSE OF RITUXIMAB 26/FEB/2014 PRIOR TO AE, DOSE CONCENTRATION OF LAST RITUXIMAB TAKEN 1M
     Route: 042
     Dates: start: 20131017
  2. CYCLOPHOSPHAMIDE [Suspect]
     Indication: NON-HODGKIN^S LYMPHOMA UNSPECIFIED HISTOLOGY INDOLENT
     Dosage: DOSE OF LAST CYCLOPHOSPHAMIDE TAKEN 1113MG, DATE OF MOST RECENT DOSE OF CYCLOPHOSPHAMIDE PRIOR TO AE
     Route: 042
     Dates: start: 20131018
  3. VINCRISTINE [Suspect]
     Indication: NON-HODGKIN^S LYMPHOMA UNSPECIFIED HISTOLOGY INDOLENT
     Dosage: DOSE OF LAST VINCRISTINE TAKEN 1MG, DATE OF MOST RECENT DOSE OF VINCRISTIN PRIOR TO AE ONSET 27/FEB/
     Route: 042
  4. PREDNISONE [Suspect]
     Indication: NON-HODGKIN^S LYMPHOMA UNSPECIFIED HISTOLOGY INDOLENT
     Dosage: DOSE OF LAST PREDNISONE TAKEN 100MG, DATE OF MOST RECENT DOSE OF PREDNISONE TAKEN 02/MAR/2014
     Route: 048
     Dates: start: 20131017
  5. SENNOSIDE [Concomitant]
     Indication: CONSTIPATION
     Route: 065
     Dates: start: 20131021
  6. RABEPRAZOLE SODIUM [Concomitant]
     Route: 065
     Dates: start: 20131016
  7. CANDESARTAN CILEXETIL [Concomitant]
     Indication: HYPERTENSION
  8. BENIDIPINE HYDROCHLORIDE [Concomitant]
     Indication: HYPERTENSION
  9. GLIMEPIRIDE [Concomitant]
     Indication: DIABETES MELLITUS
  10. PRAVASTATIN SODIUM [Concomitant]
     Indication: HYPERLIPIDAEMIA
  11. SITAGLIPTIN PHOSPHATE [Concomitant]
     Indication: DIABETES MELLITUS
  12. ALENDRONATE SODIUM [Concomitant]
  13. MAGNESIUM OXIDE [Concomitant]
     Indication: CONSTIPATION
  14. METOCLOPRAMID [Concomitant]
     Indication: GASTRITIS
     Route: 065
     Dates: end: 20140206
  15. MENATETRENONE [Concomitant]
     Indication: OSTEOPOROSIS
  16. POSTERISAN [Concomitant]
     Indication: HAEMORRHOIDS
  17. ENTECAVIR HYDRATE [Concomitant]
     Route: 065
     Dates: start: 20131218
  18. BAKTAR [Concomitant]
     Route: 065
     Dates: start: 20131016
  19. FEBUXOSTAT [Concomitant]
     Route: 065
     Dates: start: 20131016
  20. ACETAMINOPHEN [Concomitant]
     Route: 065
     Dates: start: 20131017, end: 20140226
  21. ACETAMINOPHEN [Concomitant]
     Route: 065
     Dates: start: 20131025
  22. CLOSTRIDIUM BUTYRICUM [Concomitant]
     Indication: CONSTIPATION
     Route: 065
     Dates: start: 20131019
  23. HACHIAZULE [Concomitant]
     Route: 065
     Dates: start: 20131021
  24. LOXOPROFEN SODIUM [Concomitant]
     Indication: BACK PAIN
     Route: 065
     Dates: start: 20131025
  25. AZASETRON HYDROCHLORIDE [Concomitant]
     Route: 065
     Dates: start: 20131018, end: 20140227
  26. INSULIN GLARGINE [Concomitant]
     Indication: DIABETES MELLITUS
     Route: 065
     Dates: start: 20131202, end: 20140305
  27. INSULIN GLARGINE [Concomitant]
     Route: 065
     Dates: start: 20140315
  28. DIPHENHYDRAMINE HYDROCHLORIDE [Concomitant]
     Indication: INFUSION RELATED REACTION
     Route: 065
     Dates: start: 20131017, end: 20140226
  29. FILGRASTIM [Concomitant]
     Route: 065
     Dates: start: 20140213, end: 20140214
  30. FILGRASTIM [Concomitant]
     Route: 065
     Dates: start: 20140217, end: 20140217
  31. MITIGLINIDE CALCIUM HYDRATE [Concomitant]
     Indication: DIABETES MELLITUS
     Route: 065
     Dates: start: 20140218
  32. INSULIN HUMAN [Concomitant]
     Indication: DIABETES MELLITUS
     Route: 065
     Dates: start: 20140305, end: 20140313

REACTIONS (1)
  - Syncope [Recovered/Resolved]
